FAERS Safety Report 7405162-X (Version None)
Quarter: 2011Q2

REPORT INFORMATION
  Report Type: 
  Country: None (occurrence: None)
  Receive Date: 20110411
  Receipt Date: 20110401
  Transmission Date: 20111010
  Serious: Yes (Hospitalization, Other)
  Sender: FDA-Public Use
  Company Number: AU-BRISTOL-MYERS SQUIBB COMPANY-15640170

PATIENT
  Age: 46 Year
  Sex: Male

DRUGS (3)
  1. IRBESARTAN + HCTZ [Suspect]
     Indication: HYPERTENSION
     Dosage: 1DF=300/12.5MG
  2. QUETIAPINE [Interacting]
     Indication: AGITATION
  3. ESCITALOPRAM [Interacting]

REACTIONS (5)
  - FALL [None]
  - MULTIPLE DRUG OVERDOSE [None]
  - ADJUSTMENT DISORDER WITH DEPRESSED MOOD [None]
  - HYPOTENSION [None]
  - DRUG INTERACTION [None]
